FAERS Safety Report 9729794 (Version 3)
Quarter: 2015Q3

REPORT INFORMATION
  Report Type: Spontaneous
  Country: US (occurrence: US)
  Receive Date: 20131204
  Receipt Date: 20150804
  Transmission Date: 20151125
  Serious: No
  Sender: FDA-Public Use
  Company Number: US-GILEAD-2009-0021848

PATIENT
  Age: 62 Year
  Sex: Female
  Weight: 88.45 kg

DRUGS (15)
  1. SENSIPAR [Concomitant]
     Active Substance: CINACALCET HYDROCHLORIDE
  2. PROMETHAZINE [Concomitant]
     Active Substance: PROMETHAZINE\PROMETHAZINE HYDROCHLORIDE
  3. NEXIUM [Concomitant]
     Active Substance: ESOMEPRAZOLE MAGNESIUM
  4. CEPHALEXIN. [Concomitant]
     Active Substance: CEPHALEXIN
  5. RENVELA [Concomitant]
     Active Substance: SEVELAMER CARBONATE
  6. LETAIRIS [Suspect]
     Active Substance: AMBRISENTAN
     Indication: PULMONARY ARTERIAL HYPERTENSION
     Route: 048
     Dates: start: 20090402
  7. SYNTHROID [Concomitant]
     Active Substance: LEVOTHYROXINE SODIUM
  8. LORTAB [Concomitant]
     Active Substance: ACETAMINOPHEN\HYDROCODONE BITARTRATE
  9. DIGOXIN. [Concomitant]
     Active Substance: DIGOXIN
  10. ZETIA [Concomitant]
     Active Substance: EZETIMIBE
  11. BUSPAR [Concomitant]
     Active Substance: BUSPIRONE HYDROCHLORIDE
  12. MARINOL [Concomitant]
     Active Substance: DRONABINOL
  13. VITAMIN E [Concomitant]
     Active Substance: .ALPHA.-TOCOPHEROL
  14. NEPHRO-VITE RX [Concomitant]
  15. MIDODRINE HCL [Concomitant]
     Active Substance: MIDODRINE HYDROCHLORIDE

REACTIONS (3)
  - Fatigue [Unknown]
  - Nausea [Unknown]
  - Asthenia [Unknown]
